FAERS Safety Report 17949009 (Version 1)
Quarter: 2020Q2

REPORT INFORMATION
  Report Type: Spontaneous
  Country: US (occurrence: US)
  Receive Date: 20200625
  Receipt Date: 20200625
  Transmission Date: 20200714
  Serious: No
  Sender: FDA-Public Use
  Company Number: US-ROCHE-2522276

PATIENT
  Age: 60 Year
  Sex: Female
  Weight: 48.12 kg

DRUGS (1)
  1. KLONOPIN [Suspect]
     Active Substance: CLONAZEPAM
     Indication: ANXIETY
     Dosage: 7.5 MG ONCE DAILY
     Route: 048
     Dates: start: 1996

REACTIONS (6)
  - Nausea [Unknown]
  - Dyskinesia [Unknown]
  - Intentional product use issue [Unknown]
  - Insomnia [Unknown]
  - Off label use [Unknown]
  - Irritability [Unknown]

NARRATIVE: CASE EVENT DATE: 1996
